FAERS Safety Report 20780288 (Version 3)
Quarter: 2022Q2

REPORT INFORMATION
  Report Type: Spontaneous
  Country: US (occurrence: US)
  Receive Date: 20220503
  Receipt Date: 20220524
  Transmission Date: 20220721
  Serious: No
  Sender: FDA-Public Use
  Company Number: US-JNJFOC-20220500148

PATIENT
  Age: 57 Year
  Sex: Female
  Weight: 59.020 kg

DRUGS (1)
  1. SPRAVATO [Suspect]
     Active Substance: ESKETAMINE
     Indication: Major depression
     Dosage: TOTAL NUMBER OF DOSES : 3
     Route: 045
     Dates: start: 20220425

REACTIONS (3)
  - Device malfunction [Unknown]
  - Feeling abnormal [Unknown]
  - Taste disorder [Unknown]

NARRATIVE: CASE EVENT DATE: 20220425
